FAERS Safety Report 20503726 (Version 4)
Quarter: 2022Q2

REPORT INFORMATION
  Report Type: Report from Study
  Country: FR (occurrence: FR)
  Receive Date: 20220222
  Receipt Date: 20220526
  Transmission Date: 20220720
  Serious: Yes (Other)
  Sender: FDA-Public Use
  Company Number: FR-GILEAD-2022-0563972

PATIENT
  Sex: Female
  Weight: 58 kg

DRUGS (3)
  1. SACITUZUMAB GOVITECAN [Suspect]
     Active Substance: SACITUZUMAB GOVITECAN
     Indication: Breast cancer metastatic
     Dosage: 10 MG/KG C1D1 AND C1D8
     Route: 042
     Dates: start: 20211210, end: 20211217
  2. SACITUZUMAB GOVITECAN [Suspect]
     Active Substance: SACITUZUMAB GOVITECAN
     Dosage: 10 MG/KG C2D1
     Route: 042
     Dates: start: 20211231, end: 20220107
  3. SACITUZUMAB GOVITECAN [Suspect]
     Active Substance: SACITUZUMAB GOVITECAN
     Dosage: 10 MG/KG C3D1
     Route: 042
     Dates: start: 20220128, end: 20220128

REACTIONS (4)
  - Disease progression [Not Recovered/Not Resolved]
  - Drug ineffective [Unknown]
  - Neutropenia [Recovered/Resolved]
  - Alopecia [Unknown]

NARRATIVE: CASE EVENT DATE: 20211228
